FAERS Safety Report 8037206-9 (Version None)
Quarter: 2011Q4

REPORT INFORMATION
  Report Type: 
  Country: None (occurrence: None)
  Receive Date: 20111202
  Receipt Date: 20091109
  Transmission Date: 20120403
  Serious: Yes (Hospitalization, Disabling, Other)
  Sender: FDA-Public Use
  Company Number: 2009SP035179

PATIENT
  Age: 34 Year
  Sex: Female
  Weight: 61.2356 kg

DRUGS (9)
  1. LEVAQUIN [Suspect]
     Indication: KIDNEY INFECTION
     Dates: start: 20070816
  2. XOPENEX [Concomitant]
  3. IBUPROFEN [Concomitant]
  4. ZOLOFT [Concomitant]
  5. ALBUTEROL [Concomitant]
  6. DIET PILL [Concomitant]
  7. ANTIBIOTIC [Concomitant]
  8. ADVAIR DISKUS 100/50 [Concomitant]
  9. NUVARING [Suspect]
     Indication: CONTRACEPTION
     Dosage: ;VAG
     Route: 067
     Dates: start: 20050816, end: 20071101

REACTIONS (11)
  - CEREBROVASCULAR ACCIDENT [None]
  - MIGRAINE [None]
  - DRUG HYPERSENSITIVITY [None]
  - KIDNEY INFECTION [None]
  - HYPERGLYCAEMIA [None]
  - DYSAESTHESIA [None]
  - TRANSIENT ISCHAEMIC ATTACK [None]
  - UNINTENDED PREGNANCY [None]
  - ADVERSE DRUG REACTION [None]
  - DEPRESSION [None]
  - URINARY TRACT INFECTION [None]
